FAERS Safety Report 7146311-0 (Version None)
Quarter: 2010Q4

REPORT INFORMATION
  Report Type: 
  Country: None (occurrence: None)
  Receive Date: 20101208
  Receipt Date: 20101129
  Transmission Date: 20110411
  Serious: Yes (Hospitalization)
  Sender: FDA-Public Use
  Company Number: CA-JNJFOC-20101200978

PATIENT
  Sex: Male
  Weight: 75 kg

DRUGS (5)
  1. REMICADE [Suspect]
     Indication: COLITIS ULCERATIVE
     Route: 042
  2. REMICADE [Suspect]
     Route: 042
  3. REMICADE [Suspect]
     Route: 042
  4. IMURAN [Concomitant]
     Route: 048
  5. MESALAMINE [Concomitant]
     Dosage: 4 TABS DAILY
     Route: 048

REACTIONS (1)
  - APPENDICITIS [None]
